FAERS Safety Report 13179536 (Version 2)
Quarter: 2017Q1

REPORT INFORMATION
  Report Type: Spontaneous
  Country: US (occurrence: US)
  Receive Date: 20170202
  Receipt Date: 20170303
  Transmission Date: 20170428
  Serious: No
  Sender: FDA-Public Use
  Company Number: US-ASTRAZENECA-2017SE11983

PATIENT
  Age: 57 Year
  Sex: Female
  Weight: 79.4 kg

DRUGS (3)
  1. RHINOCORT [Suspect]
     Active Substance: BUDESONIDE
     Indication: MULTIPLE ALLERGIES
     Dosage: 2 SPRAYS PER NOSTRIL, TWICE A TOTAL
     Route: 055
  2. RHINOCORT [Suspect]
     Active Substance: BUDESONIDE
     Indication: HYPERSENSITIVITY
     Dosage: 2 SPRAYS PER NOSTRIL, TWICE A TOTAL
     Route: 055
  3. RHINOCORT [Suspect]
     Active Substance: BUDESONIDE
     Indication: FOOD ALLERGY
     Dosage: 2 SPRAYS PER NOSTRIL, TWICE A TOTAL
     Route: 055

REACTIONS (8)
  - Facial pain [Recovered/Resolved]
  - Nasal discomfort [Recovered/Resolved]
  - Dizziness [Recovered/Resolved]
  - Rhinalgia [Recovered/Resolved]
  - Hypoaesthesia [Recovered/Resolved]
  - Nonspecific reaction [Recovered/Resolved]
  - Product use issue [Recovered/Resolved]
  - Off label use [Recovered/Resolved]
